FAERS Safety Report 11266201 (Version 1)
Quarter: 2015Q3

REPORT INFORMATION
  Report Type: Spontaneous
  Country: GB (occurrence: GB)
  Receive Date: 20150713
  Receipt Date: 20150713
  Transmission Date: 20151125
  Serious: Yes (Hospitalization)
  Sender: FDA-Public Use
  Company Number: GB-009507513-1507GBR004893

PATIENT
  Age: 67 Year
  Sex: Female
  Weight: 37 kg

DRUGS (10)
  1. CITALOPRAM [Concomitant]
     Active Substance: CITALOPRAM HYDROBROMIDE
  2. AMOXICILLIN (+) CLAVULANATE POTASSIUM [Concomitant]
     Active Substance: AMOXICILLIN\CLAVULANATE POTASSIUM
  3. METRONIDAZOLE. [Concomitant]
     Active Substance: METRONIDAZOLE
  4. TAZOCIN [Concomitant]
     Active Substance: PIPERACILLIN SODIUM\TAZOBACTAM SODIUM
  5. ERTAPENEM SODIUM [Suspect]
     Active Substance: ERTAPENEM SODIUM
     Indication: LIVER ABSCESS
     Route: 042
     Dates: start: 20150507
  6. LEVOTHYROXINE SODIUM. [Concomitant]
     Active Substance: LEVOTHYROXINE SODIUM
  7. AMITRIPTYLINE HYDROCHLORIDE. [Concomitant]
     Active Substance: AMITRIPTYLINE HYDROCHLORIDE
  8. LANSOPRAZOLE. [Concomitant]
     Active Substance: LANSOPRAZOLE
  9. CYCLIZINE [Concomitant]
     Active Substance: CYCLIZINE
  10. PROPRANOLOL HYDROCHLORIDE. [Concomitant]
     Active Substance: PROPRANOLOL HYDROCHLORIDE

REACTIONS (7)
  - Exfoliative rash [Recovering/Resolving]
  - Dry skin [Recovering/Resolving]
  - Chills [Recovering/Resolving]
  - Rash generalised [Recovering/Resolving]
  - Speech disorder [Recovering/Resolving]
  - Pruritus [Recovering/Resolving]
  - Coordination abnormal [Recovering/Resolving]
